FAERS Safety Report 6144674-6 (Version None)
Quarter: 2009Q2

REPORT INFORMATION
  Report Type: 
  Country: None (occurrence: None)
  Receive Date: 20090406
  Receipt Date: 20090331
  Transmission Date: 20091009
  Serious: No
  Sender: FDA-Public Use
  Company Number: B0559811A

PATIENT
  Sex: Female

DRUGS (2)
  1. CLAVAMOX [Suspect]
     Indication: OTITIS MEDIA
     Route: 048
     Dates: start: 20090130, end: 20090208
  2. UNKNOWN DRUG [Concomitant]
     Route: 065

REACTIONS (2)
  - DRUG ERUPTION [None]
  - RASH [None]
